FAERS Safety Report 14836720 (Version 1)
Quarter: 2018Q2

REPORT INFORMATION
  Report Type: Spontaneous
  Country: ES (occurrence: ES)
  Receive Date: 20180502
  Receipt Date: 20180502
  Transmission Date: 20180711
  Serious: Yes (Hospitalization)
  Sender: FDA-Public Use
  Company Number: PHHY2018ES076375

PATIENT
  Age: 73 Year
  Sex: Male

DRUGS (4)
  1. TACROLIMUS. [Concomitant]
     Active Substance: TACROLIMUS
     Indication: IMMUNOSUPPRESSANT DRUG THERAPY
  2. TACROLIMUS. [Concomitant]
     Active Substance: TACROLIMUS
     Indication: RENAL TRANSPLANT
     Dosage: UNK
     Route: 065
  3. MYCOPHENOLATE MOFETIL. [Suspect]
     Active Substance: MYCOPHENOLATE MOFETIL
     Indication: IMMUNOSUPPRESSANT DRUG THERAPY
  4. MYCOPHENOLATE MOFETIL. [Suspect]
     Active Substance: MYCOPHENOLATE MOFETIL
     Indication: RENAL TRANSPLANT
     Dosage: 500 MG, QD
     Route: 065

REACTIONS (7)
  - Necrotising herpetic retinopathy [Unknown]
  - Varicella zoster virus infection [Recovered/Resolved]
  - Visual acuity reduced [Not Recovered/Not Resolved]
  - Retinitis viral [Unknown]
  - Vitreous floaters [Unknown]
  - Visual impairment [Unknown]
  - Rhegmatogenous retinal detachment [Not Recovered/Not Resolved]
